FAERS Safety Report 5205935-8 (Version None)
Quarter: 2007Q1

REPORT INFORMATION
  Report Type: 
  Country: None (occurrence: None)
  Receive Date: 20070111
  Receipt Date: 20070103
  Transmission Date: 20070707
  Serious: Yes (Congenital Anomaly)
  Sender: FDA-Public Use
  Company Number: US-GLAXOSMITHKLINE-B0424123A

PATIENT

DRUGS (3)
  1. ZIDOVUDINE [Suspect]
  2. LAMIVUDINE [Suspect]
  3. NELFINAVIR [Suspect]

REACTIONS (2)
  - HYPOSPADIAS [None]
  - SCROTAL DISORDER [None]
